FAERS Safety Report 21083511 (Version 2)
Quarter: 2022Q3

REPORT INFORMATION
  Report Type: Spontaneous
  Country: US (occurrence: US)
  Receive Date: 20220714
  Receipt Date: 20220729
  Transmission Date: 20221026
  Serious: Yes (Hospitalization)
  Sender: FDA-Public Use
  Company Number: US-TEVA-2022-US-2053827

PATIENT
  Age: 50 Year
  Sex: Female

DRUGS (7)
  1. METHOTREXATE [Suspect]
     Active Substance: METHOTREXATE
     Indication: B-cell lymphoma
     Dosage: AS A PART OF MATRIX REGIMEN AND RMA REGIMEN 3.5 G/M2 ON DAY 2
     Route: 042
  2. RITUXIMAB [Suspect]
     Active Substance: RITUXIMAB
     Indication: B-cell lymphoma
     Dosage: AS A PART OF MATRIX REGIMEN, RCHOP REGIMEN AND RMA REGIMEN ON DAY 1
     Route: 041
  3. CYTARABINE [Suspect]
     Active Substance: CYTARABINE
     Indication: B-cell lymphoma
     Dosage: AS A PART OF MATRIX REGIMEN AND RMA REGIMEN 2G/M2 EVERY 12 HOURS ON DAY 3 AND DAY 4
     Route: 042
  4. THIOTEPA [Suspect]
     Active Substance: THIOTEPA
     Indication: B-cell lymphoma
     Dosage: AS A PART OF MATRIX REGIMEN ON DAY 5
     Route: 042
  5. CYCLOPHOSPHAMIDE [Suspect]
     Active Substance: CYCLOPHOSPHAMIDE
     Indication: B-cell lymphoma
     Dosage: AS PART OF RCHOP REGIMEN ON DAY 1
     Route: 042
  6. VINCRISTINE [Suspect]
     Active Substance: VINCRISTINE
     Indication: B-cell lymphoma
     Dosage: AS PART OF RCHOP REGIMEN 1.4 MG/M2 WITH MAXIMAL DOSE OF 2MG
     Route: 042
  7. PREDNISONE [Suspect]
     Active Substance: PREDNISONE
     Indication: B-cell lymphoma
     Dosage: AS PART OF RCHOP REGIMEN 100 MG/M2 ON DAYS 1-DAY 5
     Route: 048

REACTIONS (2)
  - Cytopenia [Unknown]
  - Off label use [Unknown]
